FAERS Safety Report 4517624-3 (Version None)
Quarter: 2004Q4

REPORT INFORMATION
  Report Type: 
  Country: None (occurrence: None)
  Receive Date: 20041130
  Receipt Date: 20041115
  Transmission Date: 20050328
  Serious: Yes (Other)
  Sender: FDA-Public Use
  Company Number: EWC041041197

PATIENT
  Age: 80 Year
  Sex: Female
  Weight: 50 kg

DRUGS (5)
  1. FORTEO [Suspect]
     Indication: OSTEOPOROSIS
     Dates: start: 20040921, end: 20041125
  2. LANOXIN (DIGOXIN STREULI) [Concomitant]
  3. ZINADIUR [Concomitant]
  4. METHOTREXATE [Concomitant]
  5. NAPROSYN (NAPROXEN MEPHA) [Concomitant]

REACTIONS (7)
  - C-REACTIVE PROTEIN INCREASED [None]
  - FLUSHING [None]
  - HYPERHIDROSIS [None]
  - INFUSION RELATED REACTION [None]
  - MUSCLE CRAMP [None]
  - PALPITATIONS [None]
  - RED BLOOD CELL SEDIMENTATION RATE INCREASED [None]
